FAERS Safety Report 26009117 (Version 1)
Quarter: 2025Q4

REPORT INFORMATION
  Report Type: Spontaneous
  Country: EU (occurrence: EU)
  Receive Date: 20251107
  Receipt Date: 20251107
  Transmission Date: 20260117
  Serious: Yes (Other)
  Sender: TAKEDA
  Company Number: EU-TAKEDA-2025TUS097851

PATIENT

DRUGS (2)
  1. MARIBAVIR [Suspect]
     Active Substance: MARIBAVIR
     Indication: Cytomegalovirus infection
     Dosage: UNK
  2. MARIBAVIR [Suspect]
     Active Substance: MARIBAVIR
     Indication: Allogenic stem cell transplantation

REACTIONS (3)
  - Cytomegalovirus viraemia [Unknown]
  - Eating disorder [Unknown]
  - Nausea [Recovered/Resolved]
